FAERS Safety Report 4552776-0 (Version None)
Quarter: 2005Q1

REPORT INFORMATION
  Report Type: 
  Country: None (occurrence: None)
  Receive Date: 20050111
  Receipt Date: 20050111
  Transmission Date: 20050727
  Serious: Yes (Life-Threatening, Hospitalization)
  Sender: FDA-Public Use
  Company Number: None

PATIENT
  Age: 67 Year
  Sex: Male
  Weight: 101.2 kg

DRUGS (9)
  1. HEPARIN [Suspect]
     Indication: THROMBOSIS PROPHYLAXIS
     Dosage: USED DURING SURGERY CENTRAL LINE ALSO HEPARIN COATED HEPARIN FLUSHES
     Dates: start: 20041124, end: 20041112
  2. ASPIRIN [Concomitant]
  3. PLAVIX [Concomitant]
  4. LOVENOX [Concomitant]
  5. REGLAN [Concomitant]
  6. ZOCOR [Concomitant]
  7. PROTONIX [Concomitant]
  8. MORPHINE [Concomitant]
  9. PERCOCET [Concomitant]

REACTIONS (2)
  - HEPARIN-INDUCED THROMBOCYTOPENIA [None]
  - POST PROCEDURAL COMPLICATION [None]
